FAERS Safety Report 4413382-1 (Version None)
Quarter: 2004Q3

REPORT INFORMATION
  Report Type: 
  Country: None (occurrence: None)
  Receive Date: 20040728
  Receipt Date: 20040715
  Transmission Date: 20050211
  Serious: Yes (Hospitalization)
  Sender: FDA-Public Use
  Company Number: 2004224335GB

PATIENT
  Age: 74 Year
  Sex: Female

DRUGS (3)
  1. CELEBREX [Suspect]
     Indication: OSTEOARTHRITIS
     Dosage: 200 MG, QD, ORAL
     Route: 048
     Dates: start: 20040501, end: 20040622
  2. CITALOPRAM [Concomitant]
  3. CALCICHEW-D3 [Concomitant]

REACTIONS (6)
  - ABDOMINAL PAIN UPPER [None]
  - DUODENAL ULCER [None]
  - ERYTHEMA [None]
  - FAECES DISCOLOURED [None]
  - GASTROINTESTINAL DISORDER [None]
  - HELICOBACTER INFECTION [None]
